FAERS Safety Report 21352140 (Version 2)
Quarter: 2022Q3

REPORT INFORMATION
  Report Type: Spontaneous
  Country: JP (occurrence: JP)
  Receive Date: 20220920
  Receipt Date: 20220922
  Transmission Date: 20221027
  Serious: Yes (Hospitalization, Other)
  Sender: FDA-Public Use
  Company Number: JP-UCBSA-2021041372

PATIENT
  Age: 2 Decade
  Sex: Male

DRUGS (3)
  1. LEVETIRACETAM [Suspect]
     Active Substance: LEVETIRACETAM
     Indication: Epilepsy
     Dosage: UNKNOWN DOSE
     Route: 048
  2. LAMOTRIGINE [Suspect]
     Active Substance: LAMOTRIGINE
     Indication: Epilepsy
     Dosage: UNKNOWN DOSE
  3. TOPIRAMATE [Concomitant]
     Active Substance: TOPIRAMATE
     Indication: Epilepsy
     Dosage: UNKNOWN DOSE

REACTIONS (3)
  - Agitation [Recovering/Resolving]
  - Intentional self-injury [Recovering/Resolving]
  - Irritability [Unknown]
